FAERS Safety Report 4675131-1 (Version None)
Quarter: 2005Q2

REPORT INFORMATION
  Report Type: 
  Country: None (occurrence: None)
  Receive Date: 20050526
  Receipt Date: 20050311
  Transmission Date: 20051028
  Serious: Yes (Hospitalization, Other)
  Sender: FDA-Public Use
  Company Number: US-MERCK-0503USA02607

PATIENT
  Age: 57 Year
  Sex: Female
  Weight: 105 kg

DRUGS (40)
  1. CLONIDINE [Concomitant]
     Indication: HYPERTENSION
     Route: 065
     Dates: start: 20030101, end: 20040601
  2. ZETIA [Concomitant]
     Indication: BLOOD CHOLESTEROL INCREASED
     Route: 048
     Dates: start: 20030201
  3. ACETAMINOPHEN AND PROPOXYPHENE HYDROCHLORIDE [Concomitant]
     Indication: MIGRAINE
     Route: 065
     Dates: start: 20030301, end: 20030601
  4. ACETAMINOPHEN AND PROPOXYPHENE HYDROCHLORIDE [Concomitant]
     Indication: PAIN
     Route: 065
     Dates: start: 20030301, end: 20030601
  5. FLONASE [Concomitant]
     Indication: SINUS CONGESTION
     Route: 065
  6. WARFARIN [Concomitant]
     Route: 065
     Dates: start: 20030101, end: 20030101
  7. QUININE [Concomitant]
     Indication: MUSCLE SPASMS
     Route: 065
  8. ACETAMINOPHEN AND BUTALBITAL AND CAFFEINE [Concomitant]
     Indication: MIGRAINE
     Route: 065
     Dates: start: 20021201, end: 20040901
  9. BUTALBITAL AND CAFFEINE AND ACETAMINOPHEN [Concomitant]
     Indication: PAIN
     Route: 065
     Dates: start: 20021201, end: 20040901
  10. TOURO LA [Concomitant]
     Indication: SINUS CONGESTION
     Route: 065
  11. ALTACE [Concomitant]
     Indication: BLOOD PRESSURE
     Route: 065
     Dates: start: 20020901
  12. PLAVIX [Concomitant]
     Route: 065
     Dates: start: 20020101
  13. XANAX [Concomitant]
     Indication: ANXIETY
     Route: 065
     Dates: start: 19850101, end: 20040101
  14. PREVACID [Concomitant]
     Indication: GASTROOESOPHAGEAL REFLUX DISEASE
     Route: 065
  15. SUCRALFATE [Concomitant]
     Indication: GASTROOESOPHAGEAL REFLUX DISEASE
     Route: 065
  16. COUMADIN [Concomitant]
     Route: 065
     Dates: start: 20030301, end: 20030101
  17. ASPIRIN [Concomitant]
     Route: 065
     Dates: start: 20020101
  18. ZOCOR [Concomitant]
     Indication: BLOOD CHOLESTEROL INCREASED
     Route: 048
     Dates: start: 20021001
  19. INDERAL [Concomitant]
     Indication: BLOOD PRESSURE
     Route: 065
     Dates: start: 20020901
  20. SYNTHROID [Concomitant]
     Indication: HYPOTHYROIDISM
     Route: 065
     Dates: start: 20020901, end: 20040601
  21. NORVASC [Concomitant]
     Indication: BLOOD PRESSURE
     Route: 065
     Dates: start: 20040201, end: 20040301
  22. CLONAZEPAM [Concomitant]
     Indication: ANXIETY
     Route: 065
     Dates: start: 20040401, end: 20040501
  23. LEXAPRO [Concomitant]
     Indication: ANXIETY
     Route: 065
     Dates: start: 20040501, end: 20040601
  24. ALPHAGAN [Concomitant]
     Route: 065
  25. OXYCODONE [Concomitant]
     Indication: PAIN
     Route: 065
  26. IBUPROFEN [Concomitant]
     Indication: PAIN
     Route: 065
  27. HYDROCODONE BITARTRATE [Concomitant]
     Indication: PAIN
     Route: 065
  28. DIPHENHYDRAMINE HYDROCHLORIDE [Concomitant]
     Route: 065
  29. MECLIZINE [Concomitant]
     Indication: MOTION SICKNESS
     Route: 065
  30. VIOXX [Suspect]
     Indication: OSTEOARTHRITIS
     Route: 048
     Dates: start: 20020101, end: 20040101
  31. VIOXX [Suspect]
     Indication: ARTHRITIS
     Route: 048
     Dates: start: 20020101, end: 20040101
  32. OMEPRAZOLE [Concomitant]
     Indication: GASTROOESOPHAGEAL REFLUX DISEASE
     Route: 065
  33. TOPROL-XL [Concomitant]
     Indication: BLOOD PRESSURE
     Route: 065
     Dates: start: 20040701, end: 20041001
  34. LEVOTHYROXINE SODIUM [Concomitant]
     Indication: HYPOTHYROIDISM
     Route: 065
     Dates: start: 20040701
  35. FLUOXETINE [Concomitant]
     Indication: ANXIETY
     Route: 065
     Dates: start: 20040701, end: 20040801
  36. NASONEX [Concomitant]
     Route: 065
  37. LORAZEPAM [Concomitant]
     Indication: ANXIETY
     Route: 065
     Dates: start: 20040801
  38. TRAVATAN [Concomitant]
     Route: 065
  39. ALPRAZOLAM [Concomitant]
     Route: 065
  40. HYDROCHLOROTHIAZIDE [Concomitant]
     Route: 065

REACTIONS (22)
  - ANXIETY [None]
  - ATRIOVENTRICULAR BLOCK [None]
  - CAROTID ARTERY STENOSIS [None]
  - COGNITIVE DISORDER [None]
  - CORONARY ARTERY DISEASE [None]
  - DELIRIUM [None]
  - DIZZINESS [None]
  - DYSURIA [None]
  - EMOTIONAL DISTRESS [None]
  - GASTROOESOPHAGEAL REFLUX DISEASE [None]
  - HAEMATOCRIT DECREASED [None]
  - HYPERTENSION [None]
  - IRON DEFICIENCY ANAEMIA [None]
  - MASS EXCISION [None]
  - MYOCARDIAL INFARCTION [None]
  - NEPHROLITHIASIS [None]
  - OESOPHAGITIS [None]
  - RASH [None]
  - TRANSIENT ISCHAEMIC ATTACK [None]
  - VESTIBULAR DISORDER [None]
  - VOMITING [None]
  - WEIGHT DECREASED [None]
